FAERS Safety Report 13930064 (Version 1)
Quarter: 2017Q3

REPORT INFORMATION
  Report Type: Report from Study
  Country: CA (occurrence: CA)
  Receive Date: 20170901
  Receipt Date: 20170901
  Transmission Date: 20171127
  Serious: Yes (Hospitalization)
  Sender: FDA-Public Use
  Company Number: PHHY2017CA083849

PATIENT
  Age: 78 Year
  Sex: Male

DRUGS (3)
  1. EXJADE [Suspect]
     Active Substance: DEFERASIROX
     Dosage: 1500 MG, QD, (3 TABLETS OF 500 MG)
     Route: 048
     Dates: end: 20170623
  2. EXJADE [Suspect]
     Active Substance: DEFERASIROX
     Indication: MYELODYSPLASTIC SYNDROME
     Dosage: 1000 MG, (2 TABLETS OF EXJADE 500 MG INSTEAD OF 3)
     Route: 048
     Dates: start: 20170601
  3. EXJADE [Suspect]
     Active Substance: DEFERASIROX
     Indication: ANAEMIA
     Dosage: 1500 MG, QD
     Route: 048
     Dates: start: 201705

REACTIONS (6)
  - Jaundice [Unknown]
  - Dyspnoea [Unknown]
  - Hepatic infection [Unknown]
  - Incorrect dose administered [Unknown]
  - Diarrhoea [Unknown]
  - Oropharyngeal pain [Unknown]

NARRATIVE: CASE EVENT DATE: 20170601
